FAERS Safety Report 11066387 (Version 2)
Quarter: 2015Q2

REPORT INFORMATION
  Report Type: Report from Study
  Country: KR (occurrence: None)
  Receive Date: 20150423
  Receipt Date: 20150430
  Transmission Date: 20150821
  Serious: Yes (Other)
  Sender: FDA-Public Use
  Company Number: 2015-11120

PATIENT
  Age: 67 Year
  Sex: Male
  Weight: 66.8 kg

DRUGS (5)
  1. DIAGNOGREEN (INDOCYANINE GREEN) [Concomitant]
  2. AFLIBERCEPT [Suspect]
     Active Substance: AFLIBERCEPT
     Indication: POLYPOIDAL CHOROIDAL VASCULOPATHY
     Dosage: WEEK 4
     Route: 031
     Dates: start: 20141027
  3. FLUORESCEIN (FLUORSCEIN) [Concomitant]
  4. VERTEPORFIN [Suspect]
     Active Substance: VERTEPORFIN
     Indication: POLYPOIDAL CHOROIDAL VASCULOPATHY
     Route: 042
     Dates: start: 20141027
  5. DROSYN-T (PHENYLEPHRINE HYDROCHLORIDE, TROPICAMIDE) [Concomitant]

REACTIONS (1)
  - Visual acuity tests abnormal [None]

NARRATIVE: CASE EVENT DATE: 20150212
